FAERS Safety Report 18919311 (Version 3)
Quarter: 2021Q2

REPORT INFORMATION
  Report Type: Spontaneous
  Country: CH (occurrence: CH)
  Receive Date: 20210220
  Receipt Date: 20210407
  Transmission Date: 20210717
  Serious: Yes (Life-Threatening, Disabling, Other)
  Sender: FDA-Public Use
  Company Number: CH-TAKEDA-2021TUS010636

PATIENT
  Age: 35 Year
  Sex: Female

DRUGS (7)
  1. TEMESTA [LORAZEPAM] [Concomitant]
     Active Substance: LORAZEPAM
     Indication: ANXIETY
     Dosage: UNK UNK, PRN
     Route: 065
  2. SERTRALINE [Concomitant]
     Active Substance: SERTRALINE HYDROCHLORIDE
     Route: 065
  3. ABILIFY [Concomitant]
     Active Substance: ARIPIPRAZOLE
     Route: 065
  4. SEROQUEL [Concomitant]
     Active Substance: QUETIAPINE FUMARATE
     Indication: STRESS
     Dosage: UNK UNK, PRN
     Route: 065
  5. RESOLOR [Suspect]
     Active Substance: PRUCALOPRIDE SUCCINATE
     Indication: CONSTIPATION
     Dosage: 1 MILLIGRAM, QD
     Route: 048
     Dates: start: 202010
  6. DALMADORM [Concomitant]
     Active Substance: FLURAZEPAM HYDROCHLORIDE
     Dosage: UNK
     Route: 065
  7. RESOLOR [Suspect]
     Active Substance: PRUCALOPRIDE SUCCINATE
     Dosage: 1 MILLIGRAM, QD
     Route: 048
     Dates: start: 202012

REACTIONS (1)
  - Depressed mood [Not Recovered/Not Resolved]

NARRATIVE: CASE EVENT DATE: 20210103
